FAERS Safety Report 7010093-3 (Version None)
Quarter: 2010Q3

REPORT INFORMATION
  Report Type: 
  Country: None (occurrence: None)
  Receive Date: 20100909
  Receipt Date: 20100506
  Transmission Date: 20110219
  Serious: Yes (Other)
  Sender: FDA-Public Use
  Company Number: 2010050800

PATIENT
  Age: 71 Year
  Sex: Male
  Weight: 78 kg

DRUGS (9)
  1. GEMFIBROZIL [Suspect]
     Indication: CARDIAC DISORDER
     Dosage: 600 MG, 2X/DAY, ORAL
     Route: 048
     Dates: start: 20100417, end: 20100420
  2. GEMFIBROZIL [Suspect]
     Indication: HYPERTRIGLYCERIDAEMIA
     Dosage: 600 MG, 2X/DAY, ORAL
     Route: 048
     Dates: start: 20100417, end: 20100420
  3. COZAAR [Concomitant]
  4. NORVASC [Concomitant]
  5. WARFARIN SODIUM [Concomitant]
  6. MEVACOR [Concomitant]
  7. POTASSIUM (POTASSIUM) [Concomitant]
  8. PLAVIX [Concomitant]
  9. ASPIRIN [Concomitant]

REACTIONS (4)
  - DIZZINESS [None]
  - MUSCLE SPASMS [None]
  - PAIN IN EXTREMITY [None]
  - VISION BLURRED [None]
